FAERS Safety Report 17528318 (Version 1)
Quarter: 2020Q1

REPORT INFORMATION
  Report Type: Report from Study
  Country: CR (occurrence: CR)
  Receive Date: 20200312
  Receipt Date: 20200312
  Transmission Date: 20200409
  Serious: Yes (Other)
  Sender: FDA-Public Use
  Company Number: CR-ROCHE-2459956

PATIENT
  Age: 71 Year
  Sex: Female

DRUGS (3)
  1. BONVIVA [Suspect]
     Active Substance: IBANDRONATE SODIUM
     Indication: OSTEOPENIA
     Route: 048
  2. LOVASTATINA [Concomitant]
     Active Substance: LOVASTATIN
     Indication: BLOOD CHOLESTEROL
  3. ATENOLOL. [Concomitant]
     Active Substance: ATENOLOL
     Indication: ARRHYTHMIA

REACTIONS (3)
  - Infection [Unknown]
  - Pharyngeal haemorrhage [Unknown]
  - Breath odour [Unknown]
